FAERS Safety Report 6723627-0 (Version None)
Quarter: 2010Q2

REPORT INFORMATION
  Report Type: 
  Country: None (occurrence: None)
  Receive Date: 20100513
  Receipt Date: 20100506
  Transmission Date: 20101027
  Serious: Yes (Hospitalization, Other)
  Sender: FDA-Public Use
  Company Number: PHHY2010JP29128

PATIENT
  Age: 36 Year
  Sex: Female
  Weight: 56 kg

DRUGS (8)
  1. CYCLOSPORINE [Suspect]
     Dosage: 100 MG DAILY
     Route: 048
  2. APRESOLINE [Suspect]
     Route: 041
  3. APRESOLINE [Suspect]
     Dosage: 40 MG DAILY
     Route: 048
  4. NICARDIPINE HYDROCHLORIDE [Concomitant]
     Route: 048
  5. AZATHIOPRINE [Concomitant]
     Dosage: 50 MG, UNK
     Route: 048
  6. ASPIRIN [Concomitant]
     Dosage: 100 MG, UNK
     Route: 048
  7. METHYLDOPA [Concomitant]
     Dosage: 250 MG, UNK
     Route: 048
  8. DARBEPOETIN ALFA [Concomitant]
     Route: 058

REACTIONS (9)
  - CAESAREAN SECTION [None]
  - DRUG EXPOSURE DURING PREGNANCY [None]
  - HEADACHE [None]
  - HEPATIC FUNCTION ABNORMAL [None]
  - NAUSEA [None]
  - PREGNANCY INDUCED HYPERTENSION [None]
  - PREMATURE LABOUR [None]
  - RENAL IMPAIRMENT [None]
  - TACHYCARDIA [None]
